FAERS Safety Report 4817898-5 (Version None)
Quarter: 2005Q4

REPORT INFORMATION
  Report Type: 
  Country: None (occurrence: None)
  Receive Date: 20051031
  Receipt Date: 20051031
  Transmission Date: 20060501
  Serious: Yes (Hospitalization)
  Sender: FDA-Public Use
  Company Number: None

PATIENT
  Age: 53 Year
  Sex: Male
  Weight: 73.0291 kg

DRUGS (1)
  1. PROMETHAZINE [Suspect]
     Dosage: 25 MG PO Q6 HR PRN NV
     Route: 048
     Dates: start: 20050727, end: 20050729

REACTIONS (6)
  - BLUNTED AFFECT [None]
  - CONFUSIONAL STATE [None]
  - DYSTONIA [None]
  - HYPERHIDROSIS [None]
  - HYPERTENSION [None]
  - TACHYCARDIA [None]
